FAERS Safety Report 21228882 (Version 6)
Quarter: 2022Q4

REPORT INFORMATION
  Report Type: Spontaneous
  Country: FR (occurrence: FR)
  Receive Date: 20220818
  Receipt Date: 20221214
  Transmission Date: 20230113
  Serious: No
  Sender: FDA-Public Use
  Company Number: FR-PFIZER INC-PV202200039034

PATIENT

DRUGS (1)
  1. FILGRASTIM [Suspect]
     Active Substance: FILGRASTIM
     Dosage: UNK (30 M/0.5 ML)

REACTIONS (3)
  - Device operational issue [Unknown]
  - Product container seal issue [Unknown]
  - Drug dose omission by device [Unknown]
